FAERS Safety Report 9119894 (Version 1)
Quarter: 2013Q1

REPORT INFORMATION
  Report Type: Spontaneous
  Country: MX (occurrence: MX)
  Receive Date: 20130226
  Receipt Date: 20130226
  Transmission Date: 20140127
  Serious: Yes (Other)
  Sender: FDA-Public Use
  Company Number: PHHY2013MX017897

PATIENT
  Sex: Female

DRUGS (3)
  1. ACLASTA [Suspect]
     Indication: OSTEOPOROSIS
     Dosage: 5 MG/ 100 ML, ANNUALLY
     Route: 042
     Dates: start: 201108
  2. VITAMIN D2 + CALCIUM               /00202201/ [Concomitant]
     Indication: OSTEOPOROSIS
     Dosage: UNK UKN, UNK
  3. DOLOCAM//MELOXICAM [Concomitant]
     Indication: PAIN
     Dosage: UNK UKN, UNK

REACTIONS (3)
  - Respiratory tract infection [Recovered/Resolved]
  - Gastric infection [Recovered/Resolved]
  - Epistaxis [Unknown]
